FAERS Safety Report 8584180-2 (Version None)
Quarter: 2012Q3

REPORT INFORMATION
  Report Type: 
  Country: None (occurrence: None)
  Receive Date: 20120810
  Receipt Date: 20120808
  Transmission Date: 20120928
  Serious: Yes (Hospitalization)
  Sender: FDA-Public Use
  Company Number: BE-AMGEN-BELSP2012040951

PATIENT
  Sex: Male

DRUGS (4)
  1. DOCETAXEL [Concomitant]
     Indication: PROSTATE CANCER
  2. XGEVA [Suspect]
     Indication: METASTASES TO BONE
     Dosage: 120 MG, UNK
     Route: 058
     Dates: start: 20120621
  3. VITAMIN D [Concomitant]
  4. CALCIUM [Concomitant]

REACTIONS (4)
  - ELECTROCARDIOGRAM CHANGE [None]
  - MUSCLE SPASMS [None]
  - PARAESTHESIA [None]
  - HYPOCALCAEMIA [None]
